FAERS Safety Report 16559664 (Version 1)
Quarter: 2019Q3

REPORT INFORMATION
  Report Type: Spontaneous
  Country: US (occurrence: US)
  Receive Date: 20190711
  Receipt Date: 20190711
  Transmission Date: 20191004
  Serious: No
  Sender: FDA-Public Use
  Company Number: US-PFIZER INC-2019292509

PATIENT
  Age: 58 Year
  Sex: Female
  Weight: 90.72 kg

DRUGS (10)
  1. METOPROLOL TARTRATE. [Concomitant]
     Active Substance: METOPROLOL TARTRATE
     Indication: BLOOD PRESSURE ABNORMAL
     Dosage: 25 MG, 2X/DAY
     Route: 048
     Dates: start: 2000
  2. VITAMIN C [Concomitant]
     Active Substance: ASCORBIC ACID
     Indication: HERPES ZOSTER
     Dosage: 1000 MG, 1X/DAY
     Route: 048
     Dates: start: 2017
  3. HYDROCHLOROTHIAZIDE. [Concomitant]
     Active Substance: HYDROCHLOROTHIAZIDE
     Indication: BLOOD PRESSURE ABNORMAL
     Dosage: 25 MG, DAILY[ONCE A DAILY IN THE MORNING]
     Dates: start: 2000
  4. LYSINE [Concomitant]
     Active Substance: LYSINE
     Indication: HERPES ZOSTER
     Dosage: 1000 MG, DAILY
     Route: 048
     Dates: start: 2017
  5. ACYCLOVIR [ACICLOVIR] [Concomitant]
     Active Substance: ACYCLOVIR
     Indication: HERPES ZOSTER
     Dosage: 200 MG, AS NEEDED
     Dates: start: 2016
  6. LYRICA [Suspect]
     Active Substance: PREGABALIN
     Indication: NEUROPATHY PERIPHERAL
     Dosage: 150 MG, 1X/DAY(BED TIME)
     Dates: start: 2017
  7. B COMPLEX [VITAMIN B COMPLEX] [Concomitant]
     Indication: HERPES ZOSTER
     Dosage: UNK UNK, 1X/DAY[2 TABLETS A DAY BY MOUTH]
     Route: 048
     Dates: start: 2017
  8. OXYBUTYNIN. [Concomitant]
     Active Substance: OXYBUTYNIN CHLORIDE
     Indication: BLADDER DISORDER
     Dosage: 5 MG, 2X/DAY
     Route: 048
  9. ASPIRIN [ACETYLSALICYLIC ACID] [Concomitant]
     Active Substance: ASPIRIN
     Indication: CARDIAC DISORDER
     Dosage: 81 MG, 1X/DAY
     Route: 048
     Dates: start: 2000
  10. RAMIPRIL. [Concomitant]
     Active Substance: RAMIPRIL
     Indication: BLOOD PRESSURE MEASUREMENT
     Dosage: 10 MG, 1X/DAY
     Route: 048
     Dates: start: 2000

REACTIONS (1)
  - Tongue discomfort [Not Recovered/Not Resolved]

NARRATIVE: CASE EVENT DATE: 2017
